FAERS Safety Report 19746054 (Version 1)
Quarter: 2021Q3

REPORT INFORMATION
  Report Type: Spontaneous
  Country: NZ (occurrence: NZ)
  Receive Date: 20210825
  Receipt Date: 20210825
  Transmission Date: 20211014
  Serious: Yes (Death, Hospitalization, Other)
  Sender: FDA-Public Use
  Company Number: NZ-SA-2021SA276329

PATIENT
  Age: 55 Year
  Sex: Male

DRUGS (5)
  1. PREDNISONE. [Suspect]
     Active Substance: PREDNISONE
     Indication: PSORIATIC ARTHROPATHY
     Dosage: UNK
     Route: 048
  2. LEFLUNOMIDE. [Suspect]
     Active Substance: LEFLUNOMIDE
     Indication: PSORIATIC ARTHROPATHY
     Dosage: UNK
     Route: 048
  3. PREDNISONE. [Suspect]
     Active Substance: PREDNISONE
     Dosage: UNK
     Route: 048
  4. PREDNISONE. [Suspect]
     Active Substance: PREDNISONE
     Dosage: UNK
     Route: 048
  5. METHOTREXATE. [Suspect]
     Active Substance: METHOTREXATE
     Indication: PSORIATIC ARTHROPATHY
     Dosage: 20 MG, QW
     Route: 048

REACTIONS (16)
  - Inclusion body myositis [Fatal]
  - Coma [Fatal]
  - Pyrexia [Fatal]
  - Respiratory failure [Fatal]
  - Hypotension [Fatal]
  - Necrotising myositis [Fatal]
  - Mydriasis [Fatal]
  - Metabolic acidosis [Fatal]
  - Myalgia [Fatal]
  - Muscular weakness [Fatal]
  - Muscle swelling [Fatal]
  - Microsporidia infection [Fatal]
  - Dysphagia [Fatal]
  - Renal failure [Fatal]
  - Dyspnoea [Fatal]
  - Pneumocystis jirovecii pneumonia [Fatal]
